FAERS Safety Report 5629847-0 (Version None)
Quarter: 2008Q1

REPORT INFORMATION
  Report Type: 
  Country: None (occurrence: None)
  Receive Date: 20080218
  Receipt Date: 20080211
  Transmission Date: 20080703
  Serious: Yes (Other)
  Sender: FDA-Public Use
  Company Number: US-ASTRAZENECA-2006UW27738

PATIENT
  Age: 590 Month
  Sex: Male
  Weight: 118.2 kg

DRUGS (5)
  1. SEROQUEL [Suspect]
     Indication: SCHIZOPHRENIA
     Route: 048
     Dates: start: 20040701, end: 20070107
  2. SEROQUEL [Suspect]
     Indication: BIPOLAR DISORDER
     Route: 048
     Dates: start: 20040701, end: 20070107
  3. SEROQUEL [Suspect]
     Indication: DEPRESSION
     Route: 048
     Dates: start: 20040701, end: 20070107
  4. ZYPREXA [Concomitant]
     Dates: start: 20050101
  5. WELLBUTRIN [Concomitant]
     Dates: start: 20020101

REACTIONS (4)
  - DIABETES MELLITUS [None]
  - PERICARDIAL EFFUSION [None]
  - PICKWICKIAN SYNDROME [None]
  - WEIGHT INCREASED [None]
